FAERS Safety Report 12815327 (Version 2)
Quarter: 2016Q4

REPORT INFORMATION
  Report Type: Spontaneous
  Country: BR (occurrence: BR)
  Receive Date: 20161005
  Receipt Date: 20161006
  Transmission Date: 20170207
  Serious: Yes (Hospitalization, Other)
  Sender: FDA-Public Use
  Company Number: BR-JNJFOC-20130913318

PATIENT
  Age: 64 Year
  Sex: Female
  Weight: 93 kg

DRUGS (6)
  1. LOTAR [Concomitant]
     Active Substance: AMLODIPINE\LOSARTAN
     Indication: BLOOD PRESSURE ABNORMAL
     Route: 065
     Dates: start: 201307
  2. DUSPATALIN [Concomitant]
     Active Substance: MEBEVERINE HYDROCHLORIDE
     Indication: ANTIDIARRHOEAL SUPPORTIVE CARE
     Route: 065
  3. REMICADE [Suspect]
     Active Substance: INFLIXIMAB
     Indication: CROHN^S DISEASE
     Route: 042
     Dates: start: 201604
  4. REMICADE [Suspect]
     Active Substance: INFLIXIMAB
     Indication: CROHN^S DISEASE
     Route: 042
     Dates: start: 2011
  5. REMICADE [Suspect]
     Active Substance: INFLIXIMAB
     Indication: CROHN^S DISEASE
     Dosage: POSTPONED TO 27-SEP-2013
     Route: 042
     Dates: start: 20130910
  6. LOSARTAN. [Concomitant]
     Active Substance: LOSARTAN
     Indication: HYPERTENSION
     Route: 065

REACTIONS (5)
  - Drug dose omission [Unknown]
  - Weight decreased [Unknown]
  - Blood pressure increased [Not Recovered/Not Resolved]
  - Fistula [Recovering/Resolving]
  - Post procedural infection [Recovering/Resolving]

NARRATIVE: CASE EVENT DATE: 201308
